FAERS Safety Report 16277564 (Version 1)
Quarter: 2019Q2

REPORT INFORMATION
  Report Type: Spontaneous
  Country: US (occurrence: US)
  Receive Date: 20190506
  Receipt Date: 20190506
  Transmission Date: 20190711
  Serious: Yes (Other)
  Sender: FDA-Public Use
  Company Number: US-PFIZER INC-2019188220

PATIENT
  Age: 79 Year
  Sex: Female
  Weight: 72.57 kg

DRUGS (1)
  1. ESTRING [Suspect]
     Active Substance: ESTRADIOL
     Indication: INFECTION
     Dosage: UNK (DOCTOR INSERTS IT AND LEAVES IT IN FOR 3 MONTHS)
     Route: 067
     Dates: start: 201901

REACTIONS (2)
  - Spinal fracture [Recovering/Resolving]
  - Product use in unapproved indication [Unknown]

NARRATIVE: CASE EVENT DATE: 201901
